FAERS Safety Report 5567640-8 (Version None)
Quarter: 2007Q4

REPORT INFORMATION
  Report Type: 
  Country: None (occurrence: None)
  Receive Date: 20071205
  Receipt Date: 20071121
  Transmission Date: 20080405
  Serious: Yes (Hospitalization, Other)
  Sender: FDA-Public Use
  Company Number: THYM-11455

PATIENT
  Age: 65 Year
  Sex: Female
  Weight: 46 kg

DRUGS (57)
  1. THYMOGLOBULIN [Suspect]
     Indication: RENAL TRANSPLANT
     Dosage: 45 MG QD IV
     Route: 042
     Dates: start: 20070504, end: 20070504
  2. THYMOGLOBULIN [Suspect]
  3. THYMOGLOBULIN [Suspect]
  4. THYMOGLOBULIN [Suspect]
     Indication: RENAL TRANSPLANT
     Dosage: 70 MG QD IV
     Route: 042
     Dates: start: 20070506, end: 20070506
  5. THYMOGLOBULIN [Suspect]
  6. THYMOGLOBULIN [Suspect]
  7. THYMOGLOBULIN [Suspect]
     Indication: RENAL TRANSPLANT
     Dosage: 45 MG QD IV
     Route: 042
     Dates: start: 20070507, end: 20070508
  8. THYMOGLOBULIN [Suspect]
  9. THYMOGLOBULIN [Suspect]
  10. THYMOGLOBULIN [Suspect]
     Indication: RENAL TRANSPLANT
     Dosage: 70  MG QD IV
     Route: 042
     Dates: start: 20070523, end: 20070523
  11. THYMOGLOBULIN [Suspect]
     Indication: RENAL TRANSPLANT
     Dosage: 40 MG IV
     Route: 042
     Dates: start: 20070524, end: 20070529
  12. PREDNISONE TAB [Concomitant]
  13. TACROLIMUS [Concomitant]
  14. MYCOPHENOLATE MOFETIL [Concomitant]
  15. FOLATE [Concomitant]
  16. NEPHROCAPS. MFR: FLEMING AND COMPANY [Concomitant]
  17. BACTRIM. MFR: HOFFMAN-LA ROCHE, INC. [Concomitant]
  18. REGULAR INSULIN [Concomitant]
  19. RANITIDINE HCL [Concomitant]
  20. PRAVACHOL. MFR: BRISTOL-MYERS SQUIBB [Concomitant]
  21. PROTONIX. MFR. PHARMACIA CORPORATION [Concomitant]
  22. PLARETEASE (PANCREALIPASE) [Concomitant]
  23. METOPROLOL [Concomitant]
  24. METHYLPREDNISOLONE 16MG TAB [Concomitant]
  25. LEVOFLOXACIN [Concomitant]
  26. HYDRALAZINE [Concomitant]
  27. GANCICLOVIR [Concomitant]
  28. FUROSEMIDE [Concomitant]
  29. DOCUSATE [Concomitant]
  30. DIPHENHYDRAMINE HCL [Concomitant]
  31. DILTIAZEM [Concomitant]
  32. DARBEPOIETIN [Concomitant]
  33. CLOTRIMAZOLE [Concomitant]
  34. CEFAZOLIN [Concomitant]
  35. CALCITONIN-SALMON [Concomitant]
  36. AZATHIOPRINE [Concomitant]
  37. AMLODIPINE [Concomitant]
  38. ACETAMINOPHEN [Concomitant]
  39. HYDROCORTISONE SODIUM SUCCINATE [Concomitant]
  40. SIMETHICONE [Concomitant]
  41. OXYCODONE HCL [Concomitant]
  42. OXYBUTYNIN CHLORIDE [Concomitant]
  43. ONDANSETRON [Concomitant]
  44. NALOXONE [Concomitant]
  45. METOCLOPRAMIDE [Concomitant]
  46. MAGNESIUM HYDROXIDE TAB [Concomitant]
  47. LISPRO INSULIN [Concomitant]
  48. HYDROMORPHONE HCL [Concomitant]
  49. BISACODYL [Concomitant]
  50. BELLADONNA [Concomitant]
  51. ALUMINUM MAGNESIUM SIMETHICONE [Concomitant]
  52. VALGANCICLOVIR HCL [Concomitant]
  53. CALCIUM [Concomitant]
  54. CACITRIOL [Concomitant]
  55. ASPIRIN [Concomitant]
  56. ASCORBIC ACID [Concomitant]
  57. HEPARIN [Concomitant]

REACTIONS (10)
  - ARTERIAL DISORDER [None]
  - DRUG TOXICITY [None]
  - GLOMERULONEPHRITIS [None]
  - INJURY [None]
  - KIDNEY TRANSPLANT REJECTION [None]
  - NEPHROPATHY TOXIC [None]
  - RENAL TUBULAR ATROPHY [None]
  - SCAR [None]
  - THROMBOTIC MICROANGIOPATHY [None]
  - VASCULAR INJURY [None]
